FAERS Safety Report 5222513-5 (Version None)
Quarter: 2007Q1

REPORT INFORMATION
  Report Type: 
  Country: None (occurrence: None)
  Receive Date: 20070129
  Receipt Date: 20070126
  Transmission Date: 20070707
  Serious: Yes (Hospitalization, Other)
  Sender: FDA-Public Use
  Company Number: DE-BRISTOL-MYERS SQUIBB COMPANY-13601505

PATIENT
  Age: 82 Year
  Sex: Female

DRUGS (1)
  1. LITALIR [Suspect]
     Indication: THROMBOCYTHAEMIA

REACTIONS (2)
  - CEREBROVASCULAR ACCIDENT [None]
  - HALLUCINATION [None]
